FAERS Safety Report 4437551-X (Version None)
Quarter: 2004Q3

REPORT INFORMATION
  Report Type: 
  Country: None (occurrence: None)
  Receive Date: 20040830
  Receipt Date: 20040830
  Transmission Date: 20050211
  Serious: Yes (Other)
  Sender: FDA-Public Use
  Company Number: None

PATIENT
  Sex: Female
  Weight: 88.905 kg

DRUGS (1)
  1. LOVASTATIN [Suspect]
     Indication: BLOOD CHOLESTEROL INCREASED
     Dosage: 10 MG PER DAY ORAL
     Route: 048
     Dates: start: 20030624, end: 20030727

REACTIONS (4)
  - ASTHENIA [None]
  - BALANCE DISORDER [None]
  - DYSSTASIA [None]
  - PAIN [None]
